FAERS Safety Report 7539122-5 (Version None)
Quarter: 2011Q2

REPORT INFORMATION
  Report Type: 
  Country: None (occurrence: None)
  Receive Date: 20110610
  Receipt Date: 19970910
  Transmission Date: 20111010
  Serious: Yes (Other)
  Sender: FDA-Public Use
  Company Number: PHHO1997BR04099

PATIENT
  Age: 72 Year
  Sex: Female
  Weight: 30 kg

DRUGS (4)
  1. PREDNISONE [Concomitant]
     Indication: CHRONIC OBSTRUCTIVE PULMONARY DISEASE
  2. DIOVAN [Suspect]
     Dosage: 80 MG, QD
     Route: 048
     Dates: start: 19970712
  3. RANITIDINE [Concomitant]
     Indication: GASTRITIS
  4. AMINOPHYLLIN TAB [Concomitant]
     Indication: CHRONIC OBSTRUCTIVE PULMONARY DISEASE

REACTIONS (1)
  - INTESTINAL ISCHAEMIA [None]
